FAERS Safety Report 4396507-6 (Version None)
Quarter: 2004Q3

REPORT INFORMATION
  Report Type: 
  Country: None (occurrence: None)
  Receive Date: 20040709
  Receipt Date: 20040625
  Transmission Date: 20050211
  Serious: Yes (Other)
  Sender: FDA-Public Use
  Company Number: DE-JNJFOC-20040607209

PATIENT
  Age: 52 Year
  Sex: Female

DRUGS (2)
  1. RISPERDAL [Suspect]
     Indication: DELUSIONAL DISORDER, UNSPECIFIED TYPE
     Dosage: 6 MG, 1 IN 1 DAY, ORAL
     Route: 048
     Dates: end: 20031006
  2. NEUROCIL (LEVOMEPROMAZINE MALEATE) [Suspect]
     Dosage: 75 MG, IN 1 DAY, ORAL
     Route: 048
     Dates: end: 20030918

REACTIONS (6)
  - CONDITION AGGRAVATED [None]
  - CONFUSIONAL STATE [None]
  - DELUSIONAL DISORDER, UNSPECIFIED TYPE [None]
  - DISORIENTATION [None]
  - DRUG INTERACTION [None]
  - PARKINSONISM [None]
